FAERS Safety Report 8840204 (Version 2)
Quarter: 2012Q4

REPORT INFORMATION
  Report Type: Report from Study
  Country: JP (occurrence: JP)
  Receive Date: 20121015
  Receipt Date: 20121115
  Transmission Date: 20130627
  Serious: Yes (Other)
  Sender: FDA-Public Use
  Company Number: JP-VERTEX PHARMACEUTICAL INC.-2012-022677

PATIENT
  Age: 70 Year
  Sex: Male

DRUGS (15)
  1. VX-950 (TELAPREVIR) [Suspect]
     Indication: CHRONIC HEPATITIS C
     Dosage: 1500 mg, qd
     Route: 048
     Dates: start: 20121002, end: 20121004
  2. VX-950 (TELAPREVIR) [Suspect]
     Dosage: 1250 mg, qd
     Route: 048
     Dates: start: 20121005, end: 20121005
  3. VX-950 (TELAPREVIR) [Suspect]
     Dosage: 500 mg, qd
     Route: 048
     Dates: start: 20121006, end: 20121017
  4. RIBAVIRIN [Suspect]
     Indication: CHRONIC HEPATITIS C
     Dosage: 600 mg, qd
     Route: 048
     Dates: start: 20121002, end: 20121004
  5. RIBAVIRIN [Suspect]
     Dosage: 400 mg, qd
     Route: 048
     Dates: start: 20121005, end: 20121009
  6. RIBAVIRIN [Suspect]
     Dosage: 600 UNK, UNK
     Route: 048
     Dates: start: 20121010, end: 20121031
  7. RIBAVIRIN [Suspect]
     Dosage: 800 UNK, UNK
     Route: 048
     Dates: start: 20121101
  8. PEGINTRON                          /01543001/ [Suspect]
     Indication: CHRONIC HEPATITIS C
     Dosage: 80 ?g, qw
     Route: 058
     Dates: start: 20121002, end: 20121008
  9. PEGINTRON                          /01543001/ [Suspect]
     Dosage: 40 ?g, qw
     Route: 058
     Dates: start: 20121009, end: 20121015
  10. PEGINTRON                          /01543001/ [Suspect]
     Dosage: 80 ?g, qw
     Route: 058
     Dates: start: 20121016, end: 20121031
  11. PEGINTRON                          /01543001/ [Suspect]
     Dosage: 100 ?g, qw
     Route: 058
     Dates: start: 20121101
  12. JANUVIA [Concomitant]
     Dosage: 50 mg, qd
     Route: 048
  13. AMARYL [Concomitant]
     Dosage: 3 mg, qd
     Route: 048
  14. LOXONIN [Concomitant]
     Dosage: 60 mg, prn
     Route: 048
     Dates: start: 20121002, end: 20121003
  15. MYSLEE [Concomitant]
     Dosage: 5 mg, prn
     Route: 048
     Dates: start: 20121005, end: 20121012

REACTIONS (1)
  - Drug eruption [Recovered/Resolved]
